FAERS Safety Report 17856047 (Version 1)
Quarter: 2020Q2

REPORT INFORMATION
  Report Type: Spontaneous
  Country: DE (occurrence: DE)
  Receive Date: 20200603
  Receipt Date: 20200603
  Transmission Date: 20200714
  Serious: Yes (Other)
  Sender: FDA-Public Use
  Company Number: DE-ROCHE-2611890

PATIENT
  Age: 90 Year
  Sex: Female

DRUGS (1)
  1. ACTILYSE [Suspect]
     Active Substance: ALTEPLASE
     Indication: THROMBOLYSIS
     Dosage: 1 IN 1 ONCE
     Route: 050

REACTIONS (6)
  - Thrombotic cerebral infarction [Unknown]
  - Cerebral artery occlusion [Not Recovered/Not Resolved]
  - Pneumonia aspiration [Unknown]
  - Intentional product use issue [Unknown]
  - Atrial fibrillation [Unknown]
  - Off label use [Unknown]
